FAERS Safety Report 9916824 (Version 4)
Quarter: 2014Q2

REPORT INFORMATION
  Report Type: Report from Study
  Country: US (occurrence: US)
  Receive Date: 20140221
  Receipt Date: 20140515
  Transmission Date: 20141212
  Serious: Yes (Hospitalization)
  Sender: FDA-Public Use
  Company Number: US-SA-2014SA011405

PATIENT
  Age: 60 Year
  Sex: Female

DRUGS (5)
  1. AUBAGIO [Suspect]
     Indication: MULTIPLE SCLEROSIS
     Route: 048
     Dates: start: 20131127, end: 20140131
  2. CRESTOR [Concomitant]
     Indication: BLOOD CHOLESTEROL
     Route: 065
  3. NEURONTIN [Concomitant]
     Indication: NEUROPATHY PERIPHERAL
     Route: 048
     Dates: start: 20131216
  4. AVALIDE [Concomitant]
     Indication: HYPERTENSION
     Dosage: 150-125
     Route: 048
  5. MELOXICAM [Concomitant]
     Indication: ARTHRITIS
     Route: 065

REACTIONS (6)
  - Hepatic enzyme increased [Unknown]
  - Dyspnoea [Unknown]
  - Dyspnoea [Unknown]
  - Blood potassium decreased [Unknown]
  - Chest pain [Unknown]
  - Hypertension [Unknown]
